FAERS Safety Report 12420474 (Version 1)
Quarter: 2016Q2

REPORT INFORMATION
  Report Type: Spontaneous
  Country: IT (occurrence: IT)
  Receive Date: 20160531
  Receipt Date: 20160531
  Transmission Date: 20160815
  Serious: Yes (Hospitalization)
  Sender: FDA-Public Use
  Company Number: IT-TEVA-650589ACC

PATIENT
  Age: 75 Year
  Sex: Male

DRUGS (2)
  1. METAMIZOLE [Concomitant]
     Active Substance: METAMIZOLE
     Indication: GOITRE
  2. TICLOPIDINE HYDROCHLORIDE. [Suspect]
     Active Substance: TICLOPIDINE HYDROCHLORIDE
     Indication: THROMBOSIS PROPHYLAXIS
     Dosage: 250 MILLIGRAM DAILY; 250 MG DAILY
     Route: 048

REACTIONS (3)
  - Influenza [Unknown]
  - Haemoptysis [Recovered/Resolved]
  - Infectious pleural effusion [Unknown]

NARRATIVE: CASE EVENT DATE: 20160114
